FAERS Safety Report 7089397-4 (Version None)
Quarter: 2010Q4

REPORT INFORMATION
  Report Type: 
  Country: None (occurrence: None)
  Receive Date: 20101108
  Receipt Date: 20101103
  Transmission Date: 20110411
  Serious: Yes (Other)
  Sender: FDA-Public Use
  Company Number: GB-PFIZER INC-2010140459

PATIENT
  Age: 51 Year
  Sex: Female

DRUGS (8)
  1. CHAMPIX [Suspect]
     Dosage: UNK
     Route: 048
     Dates: start: 20101010, end: 20101016
  2. AMOXICILLIN [Concomitant]
     Indication: RESPIRATORY TRACT INFECTION
     Dosage: 500 MG, 3X/DAY
     Dates: start: 20100930, end: 20101007
  3. OMEPRAZOLE [Concomitant]
     Indication: GASTROOESOPHAGEAL REFLUX DISEASE
     Dosage: 40 MG, 1X/DAY
  4. PARACETAMOL [Concomitant]
     Indication: PAIN
     Dosage: 500 MG, AS NEEDED
  5. SALBUTAMOL [Concomitant]
     Indication: CHRONIC OBSTRUCTIVE PULMONARY DISEASE
     Dosage: 2 DF, AS NEEDED
     Route: 055
  6. SERETIDE [Concomitant]
     Indication: CHRONIC OBSTRUCTIVE PULMONARY DISEASE
     Dosage: 500 UG, 2X/DAY
     Route: 055
     Dates: end: 20100826
  7. SERETIDE [Concomitant]
     Dosage: 2 DF, 2X/DAY
     Dates: start: 20100826
  8. SPIRIVA [Concomitant]
     Indication: CHRONIC OBSTRUCTIVE PULMONARY DISEASE
     Dosage: 18 UG, 1X/DAY
     Route: 055

REACTIONS (5)
  - DYSMENORRHOEA [None]
  - MENORRHAGIA [None]
  - MUSCLE SPASMS [None]
  - RASH PRURITIC [None]
  - RASH PUSTULAR [None]
